FAERS Safety Report 8904650 (Version 1)
Quarter: 2012Q4

REPORT INFORMATION
  Report Type: 
  Country: US (occurrence: US)
  Receive Date: 20121113
  Receipt Date: 20121113
  Transmission Date: 20130627
  Serious: No
  Sender: FDA-Public Use
  Company Number: US-GLAXOSMITHKLINE-A0946441A

PATIENT
  Age: 43 Year
  Sex: Male

DRUGS (6)
  1. COREG [Suspect]
     Indication: MYOCARDIAL INFARCTION
     Dosage: 6.25MG Twice per day
     Route: 048
     Dates: start: 20110908
  2. LIPITOR [Concomitant]
  3. PLAVIX [Concomitant]
  4. ALLOPURINAL [Concomitant]
  5. WELLBUTRIN [Concomitant]
  6. NEXIUM [Concomitant]

REACTIONS (2)
  - Dizziness [Not Recovered/Not Resolved]
  - Vertigo [Unknown]
